FAERS Safety Report 16990709 (Version 1)
Quarter: 2019Q4

REPORT INFORMATION
  Report Type: Report from Study
  Country: GB (occurrence: GB)
  Receive Date: 20191104
  Receipt Date: 20191104
  Transmission Date: 20200122
  Serious: Yes (Hospitalization)
  Sender: FDA-Public Use
  Company Number: GB-SAMSUNG BIOEPIS-SB-2019-32013

PATIENT
  Sex: Female

DRUGS (1)
  1. IMRALDI [Suspect]
     Active Substance: ADALIMUMAB
     Indication: RHEUMATOID ARTHRITIS
     Route: 058

REACTIONS (7)
  - Injection site pain [Unknown]
  - Body temperature increased [Unknown]
  - Insomnia [Unknown]
  - Dizziness [Unknown]
  - Decreased appetite [Unknown]
  - Chills [Unknown]
  - Headache [Unknown]
